FAERS Safety Report 20569045 (Version 1)
Quarter: 2022Q1

REPORT INFORMATION
  Report Type: Spontaneous
  Country: US (occurrence: None)
  Receive Date: 20220308
  Receipt Date: 20220308
  Transmission Date: 20220424
  Serious: No
  Sender: FDA-Public Use
  Company Number: US-ROCHE-2964739

PATIENT
  Age: 56 Year
  Sex: Female
  Weight: 140.74 kg

DRUGS (1)
  1. ENSPRYNG [Suspect]
     Active Substance: SATRALIZUMAB-MWGE
     Indication: Neuromyelitis optica spectrum disorder
     Dosage: ON 22/NOV/2021 AND 23/NOV/2021, SHE RECEIVED SECOND AND THIRD DOSE RESPECTIVELY.
     Route: 065
     Dates: start: 20211025

REACTIONS (1)
  - Oropharyngeal pain [Unknown]

NARRATIVE: CASE EVENT DATE: 20211123
